FAERS Safety Report 14004692 (Version 1)
Quarter: 2017Q3

REPORT INFORMATION
  Report Type: Report from Study
  Country: US (occurrence: US)
  Receive Date: 20170922
  Receipt Date: 20170922
  Transmission Date: 20171128
  Serious: Yes (Other)
  Sender: FDA-Public Use
  Company Number: US-JNJFOC-20161202467

PATIENT
  Sex: Male

DRUGS (27)
  1. IMBRUVICA [Suspect]
     Active Substance: IBRUTINIB
     Indication: NON-HODGKIN^S LYMPHOMA
     Route: 048
     Dates: start: 20161109
  2. IMBRUVICA [Suspect]
     Active Substance: IBRUTINIB
     Indication: CHRONIC LYMPHOCYTIC LEUKAEMIA
     Route: 048
     Dates: start: 20161103
  3. LISINOPRIL. [Concomitant]
     Active Substance: LISINOPRIL
  4. BRIMONIDINE [Concomitant]
     Active Substance: BRIMONIDINE TARTRATE
  5. ASPIRIN. [Concomitant]
     Active Substance: ASPIRIN
  6. ZOFRAN [Concomitant]
     Active Substance: ONDANSETRON HYDROCHLORIDE
  7. NICOTINE. [Concomitant]
     Active Substance: NICOTINE
  8. SODIUM CHLORIDE. [Concomitant]
     Active Substance: SODIUM CHLORIDE
  9. XANAX [Concomitant]
     Active Substance: ALPRAZOLAM
  10. TYLENOL [Concomitant]
     Active Substance: ACETAMINOPHEN
  11. LOPRESSOR [Concomitant]
     Active Substance: METOPROLOL TARTRATE
  12. GLUTOSE [Concomitant]
     Active Substance: DEXTROSE
  13. MILK OF MAGNESIA [Concomitant]
     Active Substance: MAGNESIUM HYDROXIDE
  14. LATANOPROST. [Concomitant]
     Active Substance: LATANOPROST
  15. ATIVAN [Concomitant]
     Active Substance: LORAZEPAM
  16. TIMOLOL. [Concomitant]
     Active Substance: TIMOLOL
  17. HYDROMORPHONE [Concomitant]
     Active Substance: HYDROMORPHONE
  18. LOVENOX [Concomitant]
     Active Substance: ENOXAPARIN SODIUM
  19. HYDROXYZINE [Concomitant]
     Active Substance: HYDROXYZINE HYDROCHLORIDE
  20. ZOCOR [Concomitant]
     Active Substance: SIMVASTATIN
  21. IMBRUVICA [Suspect]
     Active Substance: IBRUTINIB
     Indication: CHRONIC LYMPHOCYTIC LEUKAEMIA
     Route: 048
     Dates: start: 20161109
  22. IMBRUVICA [Suspect]
     Active Substance: IBRUTINIB
     Indication: NON-HODGKIN^S LYMPHOMA
     Route: 048
     Dates: start: 20161103
  23. HUMALOG [Concomitant]
     Active Substance: INSULIN LISPRO
  24. ATORVASTATIN [Concomitant]
     Active Substance: ATORVASTATIN
  25. METRONIDAZOL [Concomitant]
     Active Substance: METRONIDAZOLE
  26. PROTONIX [Concomitant]
     Active Substance: PANTOPRAZOLE SODIUM
  27. ROCEPHIN [Concomitant]
     Active Substance: CEFTRIAXONE SODIUM

REACTIONS (18)
  - Affective disorder [Unknown]
  - Feeling jittery [Unknown]
  - Abdominal pain [Unknown]
  - Pain [Unknown]
  - Muscular weakness [Unknown]
  - Dyspnoea [Unknown]
  - Pain in extremity [Unknown]
  - Fatigue [Unknown]
  - Dizziness [Unknown]
  - Decreased interest [Unknown]
  - Asthenia [Not Recovered/Not Resolved]
  - Nervousness [Unknown]
  - Dry throat [Unknown]
  - Diarrhoea [Recovered/Resolved]
  - Decreased appetite [Unknown]
  - Suicidal ideation [Unknown]
  - Musculoskeletal pain [Unknown]
  - Nightmare [Unknown]

NARRATIVE: CASE EVENT DATE: 2016
